FAERS Safety Report 23091717 (Version 3)
Quarter: 2024Q1

REPORT INFORMATION
  Report Type: Spontaneous
  Country: US (occurrence: US)
  Receive Date: 20231020
  Receipt Date: 20240305
  Transmission Date: 20240409
  Serious: Yes (Other)
  Sender: FDA-Public Use
  Company Number: US-BoehringerIngelheim-2023-BI-268238

PATIENT
  Age: 81 Year
  Sex: Female

DRUGS (2)
  1. OFEV [Suspect]
     Active Substance: NINTEDANIB
     Indication: Idiopathic pulmonary fibrosis
     Route: 048
     Dates: start: 2023
  2. OFEV [Suspect]
     Active Substance: NINTEDANIB
     Indication: Interstitial lung disease
     Route: 048
     Dates: start: 20230901

REACTIONS (11)
  - Dementia [Not Recovered/Not Resolved]
  - Rectal haemorrhage [Recovered/Resolved]
  - Chronic kidney disease [Not Recovered/Not Resolved]
  - Proteinuria [Recovered/Resolved]
  - Proteinuria [Not Recovered/Not Resolved]
  - Haematochezia [Recovered/Resolved]
  - Diarrhoea [Recovered/Resolved]
  - Diarrhoea [Recovering/Resolving]
  - Haemorrhoids [Not Recovered/Not Resolved]
  - Diarrhoea [Recovered/Resolved]
  - Rash [Not Recovered/Not Resolved]

NARRATIVE: CASE EVENT DATE: 20230101
